FAERS Safety Report 23091682 (Version 5)
Quarter: 2024Q4

REPORT INFORMATION
  Report Type: Report from Study
  Country: US (occurrence: US)
  Receive Date: 20231020
  Receipt Date: 20241121
  Transmission Date: 20250114
  Serious: Yes (Hospitalization, Other)
  Sender: NOVARTIS
  Company Number: US-002147023-NVSC2023US224628

PATIENT
  Age: 64 Year
  Sex: Female

DRUGS (3)
  1. KESIMPTA [Suspect]
     Active Substance: OFATUMUMAB
     Indication: Multiple sclerosis
     Dosage: UNK
     Route: 065
     Dates: start: 20230615
  2. KESIMPTA [Suspect]
     Active Substance: OFATUMUMAB
     Dosage: 20 MG, QMO
     Route: 065
     Dates: start: 202307
  3. KESIMPTA [Suspect]
     Active Substance: OFATUMUMAB
     Dosage: UNK
     Route: 065
     Dates: start: 202309

REACTIONS (18)
  - Memory impairment [Unknown]
  - Cardiac failure chronic [Unknown]
  - Urinary tract infection [Unknown]
  - Liver injury [Unknown]
  - Thyroid disorder [Unknown]
  - Abdominal discomfort [Unknown]
  - Red blood cell count abnormal [Unknown]
  - Hepatic enzyme abnormal [Unknown]
  - Nausea [Unknown]
  - Fatigue [Unknown]
  - Illness [Unknown]
  - Personality change [Unknown]
  - Cardiac valve disease [Unknown]
  - Urinary incontinence [Recovered/Resolved]
  - Cognitive disorder [Unknown]
  - Micturition urgency [Recovered/Resolved]
  - Headache [Recovered/Resolved]
  - Gait disturbance [Unknown]

NARRATIVE: CASE EVENT DATE: 20230925
